FAERS Safety Report 11039886 (Version 1)
Quarter: 2015Q2

REPORT INFORMATION
  Report Type: Report from Study
  Country: US (occurrence: US)
  Receive Date: 20150416
  Receipt Date: 20150416
  Transmission Date: 20150821
  Serious: Yes (Hospitalization)
  Sender: FDA-Public Use
  Company Number: US-PURDUE-USA-2015-0122691

PATIENT
  Age: 50 Year
  Sex: Male

DRUGS (1)
  1. OXYCONTIN [Suspect]
     Active Substance: OXYCODONE HYDROCHLORIDE
     Indication: PAIN
     Dosage: 40 MG, BID
     Route: 048
     Dates: start: 201408

REACTIONS (3)
  - Infection [Unknown]
  - Post procedural infection [Unknown]
  - Weight decreased [Unknown]

NARRATIVE: CASE EVENT DATE: 201502
